FAERS Safety Report 5190396-8 (Version None)
Quarter: 2006Q4

REPORT INFORMATION
  Report Type: 
  Country: None (occurrence: None)
  Receive Date: 20061222
  Receipt Date: 20061114
  Transmission Date: 20070319
  Serious: Yes (Hospitalization)
  Sender: FDA-Public Use
  Company Number: CH-ROCHE-471196

PATIENT
  Age: 17 Year
  Sex: Female

DRUGS (2)
  1. ROACCUTAN [Suspect]
     Indication: ACNE PUSTULAR
     Route: 048
     Dates: start: 20021029, end: 20021220
  2. DIANE-35 [Concomitant]
     Route: 048
     Dates: start: 20021029, end: 20021125

REACTIONS (10)
  - ACNE [None]
  - ACUTE PSYCHOSIS [None]
  - ANXIETY [None]
  - CONFUSIONAL STATE [None]
  - DEPRESSION [None]
  - ECZEMA ASTEATOTIC [None]
  - PERSONALITY DISORDER [None]
  - SLEEP DISORDER [None]
  - SUICIDE ATTEMPT [None]
  - WEIGHT INCREASED [None]
